FAERS Safety Report 4689762-6 (Version None)
Quarter: 2005Q2

REPORT INFORMATION
  Report Type: 
  Country: None (occurrence: None)
  Receive Date: 20050608
  Receipt Date: 20040927
  Transmission Date: 20051028
  Serious: Yes (Hospitalization)
  Sender: FDA-Public Use
  Company Number: 381698

PATIENT
  Age: 15 Year
  Sex: Female
  Weight: 44 kg

DRUGS (3)
  1. ACCUTANE [Suspect]
     Indication: ACNE
     Dosage: 20 MG 1 PER 2 DAY ORAL
     Route: 048
     Dates: start: 20040515, end: 20040924
  2. ADDERALL (AMFETAMINE/DEXTROAMPHETAMINE) [Concomitant]
  3. BIRTH CONTROL PILL (ORAL CONTRACEPTIVE NOS) [Concomitant]

REACTIONS (3)
  - DEPRESSION [None]
  - IRRITABILITY [None]
  - SOCIAL AVOIDANT BEHAVIOUR [None]
